FAERS Safety Report 7708748-8 (Version None)
Quarter: 2011Q3

REPORT INFORMATION
  Report Type: 
  Country: None (occurrence: None)
  Receive Date: 20110819
  Receipt Date: 20110804
  Transmission Date: 20111222
  Serious: Yes (Other)
  Sender: FDA-Public Use
  Company Number: 2011MA011765

PATIENT
  Age: 66 Year
  Sex: Female

DRUGS (3)
  1. FLUTICASONE PROPIONATE [Suspect]
  2. AMINOPHYLLINE [Suspect]
     Indication: ASTHMA
  3. ALBUTEROL SULFATE [Suspect]

REACTIONS (2)
  - DRUG INEFFECTIVE [None]
  - ASTHMA [None]
